FAERS Safety Report 5475770-4 (Version None)
Quarter: 2007Q4

REPORT INFORMATION
  Report Type: 
  Country: None (occurrence: None)
  Receive Date: 20071003
  Receipt Date: 20070927
  Transmission Date: 20080405
  Serious: Yes (Other)
  Sender: FDA-Public Use
  Company Number: B0487591A

PATIENT
  Sex: Female

DRUGS (1)
  1. NIQUITIN CQ 2MG LOZENGE [Suspect]
     Route: 002
     Dates: start: 20020101

REACTIONS (3)
  - AXILLARY MASS [None]
  - DEPENDENCE [None]
  - GASTROINTESTINAL SOUNDS ABNORMAL [None]
